FAERS Safety Report 7984992-X (Version None)
Quarter: 2011Q4

REPORT INFORMATION
  Report Type: 
  Country: None (occurrence: None)
  Receive Date: 20111216
  Receipt Date: 20111101
  Transmission Date: 20120403
  Serious: No
  Sender: FDA-Public Use
  Company Number: US-ALLERGAN-1114397US

PATIENT
  Age: 37 Year
  Sex: Female
  Weight: 54.422 kg

DRUGS (3)
  1. LATISSE [Suspect]
     Indication: GROWTH OF EYELASHES
     Dosage: 2 GTT, QHS
     Route: 061
     Dates: start: 20110801, end: 20110901
  2. MASCARA [Concomitant]
  3. EYELINER [Concomitant]

REACTIONS (2)
  - DRUG INEFFECTIVE [None]
  - MADAROSIS [None]
